FAERS Safety Report 4570956-5 (Version None)
Quarter: 2005Q1

REPORT INFORMATION
  Report Type: 
  Country: None (occurrence: None)
  Receive Date: 20050204
  Receipt Date: 20031121
  Transmission Date: 20050727
  Serious: Yes (Disabling, Other)
  Sender: FDA-Public Use
  Company Number: US-MERCK-0311USA02542

PATIENT
  Age: 32 Year
  Sex: Female
  Weight: 74 kg

DRUGS (17)
  1. VIOXX [Suspect]
     Indication: RHEUMATOID ARTHRITIS
     Route: 048
     Dates: start: 20000401, end: 20021001
  2. VIOXX [Suspect]
     Route: 048
  3. VIOXX [Suspect]
     Indication: RIB FRACTURE
     Route: 048
     Dates: start: 20000401, end: 20021001
  4. VIOXX [Suspect]
     Route: 048
  5. ORTHO-NOVUM 7/7/7-21 [Concomitant]
     Route: 065
  6. ZOLOFT [Concomitant]
     Route: 065
  7. PAXIL [Concomitant]
     Route: 065
  8. TRAZODONE HYDROCHLORIDE [Concomitant]
     Route: 065
  9. LITHOBID [Concomitant]
     Route: 065
  10. VITAMIN D (UNSPECIFIED) [Concomitant]
     Route: 065
  11. CALCIUM (UNSPECIFIED) [Concomitant]
     Route: 065
  12. VICODIN [Concomitant]
     Route: 065
  13. ULTRAM [Concomitant]
     Route: 065
  14. OXYCONTIN [Concomitant]
     Route: 065
  15. METHADONE HCL [Concomitant]
     Route: 065
  16. ADVIL [Concomitant]
     Route: 065
     Dates: start: 19980101
  17. TYLENOL [Concomitant]
     Route: 065
     Dates: start: 19980101

REACTIONS (18)
  - ANXIETY [None]
  - CEREBRAL ARTERY OCCLUSION [None]
  - CEREBROVASCULAR ACCIDENT [None]
  - CHRONIC FATIGUE SYNDROME [None]
  - CLUSTER HEADACHE [None]
  - DEPRESSION [None]
  - DIPLOPIA [None]
  - DIZZINESS [None]
  - EYELID RETRACTION [None]
  - FIBROMYALGIA [None]
  - GASTROOESOPHAGEAL REFLUX DISEASE [None]
  - HEADACHE [None]
  - HEMIANOPIA HOMONYMOUS [None]
  - INTERVERTEBRAL DISC DEGENERATION [None]
  - LID LAG [None]
  - NAUSEA [None]
  - OSTEOMALACIA [None]
  - VISUAL DISTURBANCE [None]
